FAERS Safety Report 5644573-X (Version None)
Quarter: 2008Q1

REPORT INFORMATION
  Report Type: 
  Country: None (occurrence: None)
  Receive Date: 20080229
  Receipt Date: 20070314
  Transmission Date: 20080703
  Serious: No
  Sender: FDA-Public Use
  Company Number: A0643243A

PATIENT

DRUGS (2)
  1. VALTREX [Suspect]
     Indication: EPSTEIN-BARR VIRUS INFECTION
     Dosage: 1G TWICE PER DAY
     Route: 048
  2. NO CONCURRENT MEDICATION [Concomitant]

REACTIONS (1)
  - THERAPEUTIC RESPONSE UNEXPECTED [None]
